FAERS Safety Report 4377201-4 (Version None)
Quarter: 2004Q2

REPORT INFORMATION
  Report Type: 
  Country: None (occurrence: None)
  Receive Date: 20040609
  Receipt Date: 20040223
  Transmission Date: 20050107
  Serious: No
  Sender: FDA-Public Use
  Company Number: 2004200821US

PATIENT
  Age: 40 Year
  Sex: Male

DRUGS (2)
  1. BEXTRA [Suspect]
     Indication: PAIN
     Dosage: 10 MG, QD, UNK
     Route: 065
  2. CELEBREX [Suspect]
     Dosage: 200 MG, BID, UNK
     Route: 065

REACTIONS (1)
  - EYE INFLAMMATION [None]
